FAERS Safety Report 18687205 (Version 2)
Quarter: 2021Q1

REPORT INFORMATION
  Report Type: Spontaneous
  Country: RU (occurrence: RU)
  Receive Date: 20201231
  Receipt Date: 20210112
  Transmission Date: 20210419
  Serious: Yes (Death, Hospitalization, Other)
  Sender: FDA-Public Use
  Company Number: RU-TEVA-2020-RU-1865375

PATIENT
  Age: 66 Year
  Sex: Female

DRUGS (1)
  1. CARBOPLATIN. [Suspect]
     Active Substance: CARBOPLATIN
     Dosage: 450MG / ML AND 150MG / ML
     Route: 065

REACTIONS (11)
  - Breast neoplasm [Fatal]
  - Dehydration [Fatal]
  - Poisoning [Fatal]
  - Brain oedema [Fatal]
  - General physical health deterioration [Fatal]
  - Diarrhoea [Fatal]
  - Blood count abnormal [Fatal]
  - Renal failure [Fatal]
  - Vomiting [Fatal]
  - Blood pressure decreased [Fatal]
  - Suspected counterfeit product [Unknown]

NARRATIVE: CASE EVENT DATE: 2020
